FAERS Safety Report 9709421 (Version 2)
Quarter: 2013Q4

REPORT INFORMATION
  Report Type: Report from Study
  Country: DE (occurrence: DE)
  Receive Date: 20131126
  Receipt Date: 20131213
  Transmission Date: 20140711
  Serious: Yes (Death)
  Sender: FDA-Public Use
  Company Number: DE-ROCHE-1307846

PATIENT
  Sex: 0

DRUGS (3)
  1. CAPECITABINE [Suspect]
     Indication: RECTAL CANCER
     Route: 065
  2. OXALIPLATIN [Suspect]
     Indication: RECTAL CANCER
     Route: 065
  3. CETUXIMAB [Suspect]
     Indication: RECTAL CANCER
     Route: 065

REACTIONS (2)
  - Acquired pyrimidine metabolism disorder [Fatal]
  - Sepsis [Fatal]
